FAERS Safety Report 5422009-1 (Version None)
Quarter: 2007Q3

REPORT INFORMATION
  Report Type: 
  Country: None (occurrence: None)
  Receive Date: 20070822
  Receipt Date: 20070813
  Transmission Date: 20080115
  Serious: Yes (Other)
  Sender: FDA-Public Use
  Company Number: MY-BRISTOL-MYERS SQUIBB COMPANY-13882675

PATIENT
  Age: 72 Year
  Sex: Male

DRUGS (4)
  1. ERBITUX [Suspect]
     Indication: RECTAL CANCER METASTATIC
     Route: 042
     Dates: start: 20070620
  2. OXALIPLATIN [Concomitant]
     Indication: RECTAL CANCER METASTATIC
  3. FLUOROURACIL [Concomitant]
     Indication: RECTAL CANCER METASTATIC
  4. FOLINIC ACID [Concomitant]
     Indication: RECTAL CANCER METASTATIC

REACTIONS (2)
  - SIMPLE PARTIAL SEIZURES [None]
  - VISION BLURRED [None]
